FAERS Safety Report 10481564 (Version 2)
Quarter: 2014Q3

REPORT INFORMATION
  Report Type: Spontaneous
  Country: CH (occurrence: CH)
  Receive Date: 20140929
  Receipt Date: 20140929
  Transmission Date: 20150326
  Serious: Yes (Hospitalization)
  Sender: FDA-Public Use
  Company Number: CH-EISAI MEDICAL RESEARCH-E2007-01642-SPO-CH

PATIENT
  Age: 29 Year
  Sex: Male
  Weight: 78 kg

DRUGS (11)
  1. FYCOMPA [Interacting]
     Active Substance: PERAMPANEL
     Indication: TONIC CONVULSION
     Route: 048
     Dates: start: 201308, end: 20130820
  2. APHENYLBARBIT [Interacting]
     Active Substance: PHENOBARBITAL
     Indication: TONIC CONVULSION
     Route: 048
     Dates: start: 201308, end: 201308
  3. INOVELON [Interacting]
     Active Substance: RUFINAMIDE
     Indication: TONIC CONVULSION
     Dosage: 4000 MG/DAY
     Route: 048
     Dates: start: 20130820, end: 2013
  4. APHENYLBARBIT [Interacting]
     Active Substance: PHENOBARBITAL
     Route: 042
     Dates: start: 20130829, end: 2013
  5. INOVELON [Interacting]
     Active Substance: RUFINAMIDE
     Dosage: 3200 MG/DAY
     Route: 048
     Dates: start: 2013
  6. APHENYLBARBIT [Interacting]
     Active Substance: PHENOBARBITAL
     Indication: GENERALISED TONIC-CLONIC SEIZURE
     Route: 048
     Dates: end: 201308
  7. FYCOMPA [Suspect]
     Active Substance: PERAMPANEL
     Indication: GENERALISED TONIC-CLONIC SEIZURE
     Route: 048
     Dates: start: 20130731, end: 201308
  8. APHENYLBARBIT [Interacting]
     Active Substance: PHENOBARBITAL
     Dosage: 350 MG/DAY
     Route: 048
     Dates: start: 2013
  9. INOVELON [Interacting]
     Active Substance: RUFINAMIDE
     Indication: GENERALISED TONIC-CLONIC SEIZURE
     Dosage: 2200 MG/DAY
     Route: 048
     Dates: end: 20130819
  10. APHENYLBARBIT [Interacting]
     Active Substance: PHENOBARBITAL
     Dosage: 350 MG/DAY
     Route: 042
     Dates: start: 20130820, end: 20130828
  11. PREGABALIN. [Concomitant]
     Active Substance: PREGABALIN
     Indication: PRODUCT USED FOR UNKNOWN INDICATION
     Dosage: 450 MG DAILY
     Route: 048
     Dates: end: 201308

REACTIONS (4)
  - Drug level decreased [Recovered/Resolved]
  - Prescribed overdose [Recovered/Resolved]
  - Status epilepticus [Recovered/Resolved]
  - Drug interaction [Unknown]

NARRATIVE: CASE EVENT DATE: 20130816
